FAERS Safety Report 16915974 (Version 1)
Quarter: 2019Q4

REPORT INFORMATION
  Report Type: Spontaneous
  Country: JP (occurrence: JP)
  Receive Date: 20191014
  Receipt Date: 20191014
  Transmission Date: 20200122
  Serious: Yes (Other)
  Sender: FDA-Public Use
  Company Number: JP-CELGENEUS-JPN-20191002180

PATIENT
  Age: 80 Year
  Sex: Female
  Weight: 43.5 kg

DRUGS (6)
  1. ABRAXANE [Suspect]
     Active Substance: PACLITAXEL
     Indication: PANCREATIC CARCINOMA
  2. GEMCITABINE. [Suspect]
     Active Substance: GEMCITABINE
     Indication: PANCREATIC CARCINOMA
  3. ABRAXANE [Suspect]
     Active Substance: PACLITAXEL
     Indication: ADENOCARCINOMA GASTRIC
     Dosage: 75 MILLIGRAM/SQ. METER
     Route: 065
     Dates: start: 2017, end: 2017
  4. GEMCITABINE. [Suspect]
     Active Substance: GEMCITABINE
     Indication: ADENOCARCINOMA GASTRIC
     Dosage: 750 MILLIGRAM/SQ. METER
     Route: 065
     Dates: start: 2017, end: 2017
  5. ABRAXANE [Suspect]
     Active Substance: PACLITAXEL
     Indication: METASTASES TO LUNG
  6. GEMCITABINE. [Suspect]
     Active Substance: GEMCITABINE
     Indication: METASTASES TO LUNG

REACTIONS (2)
  - Loss of personal independence in daily activities [Unknown]
  - Fatigue [Unknown]

NARRATIVE: CASE EVENT DATE: 2017
